FAERS Safety Report 4272467-3 (Version None)
Quarter: 2004Q1

REPORT INFORMATION
  Report Type: 
  Country: None (occurrence: None)
  Receive Date: 20040115
  Receipt Date: 20031112
  Transmission Date: 20041129
  Serious: Yes (Death, Life-Threatening, Hospitalization, Disabling)
  Sender: FDA-Public Use
  Company Number: WAES 0311USA01725

PATIENT
  Age: 55 Year
  Sex: Male

DRUGS (4)
  1. ANTIMICROBIAL (UNSPECIFIED) [Concomitant]
  2. ADVAIR DISKUS 250/50 [Concomitant]
     Route: 055
     Dates: start: 20011001
  3. SINGULAIR [Suspect]
     Route: 048
     Dates: start: 20011001, end: 20020305
  4. SINGULAIR [Suspect]
     Route: 048
     Dates: start: 20011001, end: 20020305

REACTIONS (38)
  - ALLERGIC GRANULOMATOUS ANGIITIS [None]
  - ASTHMA [None]
  - BENIGN PROSTATIC HYPERPLASIA [None]
  - BLOOD CHOLESTEROL INCREASED [None]
  - BRONCHITIS [None]
  - CARDIAC ARREST [None]
  - CHEST PAIN [None]
  - CHRONIC OBSTRUCTIVE AIRWAYS DISEASE [None]
  - COMA [None]
  - CONNECTIVE TISSUE DISORDER [None]
  - COUGH [None]
  - ELECTROCARDIOGRAM ST-T CHANGE [None]
  - EOSINOPHIL COUNT INCREASED [None]
  - EOSINOPHILIA [None]
  - EOSINOPHILIC MYOCARDITIS [None]
  - HAEMATURIA [None]
  - HAEMOPTYSIS [None]
  - LETHARGY [None]
  - LOW DENSITY LIPOPROTEIN INCREASED [None]
  - LUNG INFILTRATION [None]
  - MALAISE [None]
  - MYOCARDIAL INFARCTION [None]
  - OPERATIVE HAEMORRHAGE [None]
  - OXYGEN SATURATION DECREASED [None]
  - PARAESTHESIA [None]
  - PLEURAL EFFUSION [None]
  - PNEUMOCYSTIS CARINII PNEUMONIA [None]
  - PNEUMONIA [None]
  - PNEUMONIA BACTERIAL [None]
  - PULMONARY ALVEOLAR HAEMORRHAGE [None]
  - PULMONARY INTERSTITIAL EMPHYSEMA SYNDROME [None]
  - RHONCHI [None]
  - SINUS DISORDER [None]
  - SPUTUM DISCOLOURED [None]
  - SPUTUM PURULENT [None]
  - URTICARIA [None]
  - VASCULITIS NECROTISING [None]
  - WHEEZING [None]
